FAERS Safety Report 5068014-9 (Version None)
Quarter: 2006Q3

REPORT INFORMATION
  Report Type: 
  Country: None (occurrence: None)
  Receive Date: 20060728
  Receipt Date: 20060710
  Transmission Date: 20061208
  Serious: Yes (Other)
  Sender: FDA-Public Use
  Company Number: IL200607001417

PATIENT
  Age: 45 Year
  Sex: Female

DRUGS (2)
  1. CYMBALTA [Suspect]
     Indication: FIBROMYALGIA
     Dosage: 120 MG, DAILY (1/D); ORAL
     Route: 048
  2. ESCITALOPRAM [Concomitant]

REACTIONS (2)
  - DRUG INTERACTION [None]
  - MANIA [None]
